FAERS Safety Report 4723545-3 (Version None)
Quarter: 2005Q3

REPORT INFORMATION
  Report Type: 
  Country: None (occurrence: None)
  Receive Date: 20050725
  Receipt Date: 20050711
  Transmission Date: 20060218
  Serious: Yes (Hospitalization)
  Sender: FDA-Public Use
  Company Number: 2005AP03855

PATIENT
  Age: 27680 Day
  Sex: Male
  Weight: 60 kg

DRUGS (1)
  1. XYLOCAINE VISCOUS [Suspect]
     Indication: LOCAL ANAESTHESIA
     Route: 048
     Dates: start: 20050610, end: 20050610

REACTIONS (1)
  - LARYNGEAL OEDEMA [None]
